FAERS Safety Report 6066880-1 (Version None)
Quarter: 2009Q1

REPORT INFORMATION
  Report Type: 
  Country: None (occurrence: None)
  Receive Date: 20090205
  Receipt Date: 20080826
  Transmission Date: 20090719
  Serious: No
  Sender: FDA-Public Use
  Company Number: US-ABBOTT-08P-163-0472488-00

PATIENT
  Sex: Female
  Weight: 81.72 kg

DRUGS (3)
  1. VICODIN [Suspect]
     Indication: PAIN
     Route: 048
     Dates: start: 20020101, end: 20020101
  2. VICODIN [Suspect]
     Indication: DENTAL OPERATION
  3. BUPROPION HCL [Concomitant]
     Indication: DRUG USE FOR UNKNOWN INDICATION

REACTIONS (2)
  - PRURITUS [None]
  - URTICARIA [None]
